FAERS Safety Report 13320410 (Version 1)
Quarter: 2017Q1

REPORT INFORMATION
  Report Type: Report from Study
  Country: US (occurrence: US)
  Receive Date: 20170308
  Receipt Date: 20170308
  Transmission Date: 20170428
  Serious: No
  Sender: FDA-Public Use
  Company Number: US-AMGEN-USASL2016127410

PATIENT
  Age: 82 Year
  Sex: Female

DRUGS (1)
  1. SENSIPAR [Suspect]
     Active Substance: CINACALCET HYDROCHLORIDE
     Indication: HYPERTHYROIDISM
     Dosage: 30 MG, QD
     Route: 048

REACTIONS (8)
  - Faeces discoloured [Unknown]
  - Anxiety [Unknown]
  - Unevaluable event [Unknown]
  - Food allergy [Unknown]
  - Off label use [Unknown]
  - Fibromyalgia [Unknown]
  - Constipation [Unknown]
  - Nausea [Unknown]
